FAERS Safety Report 8596086-3 (Version None)
Quarter: 2012Q3

REPORT INFORMATION
  Report Type: 
  Country: None (occurrence: None)
  Receive Date: 20120807
  Receipt Date: 20120807
  Transmission Date: 20120928
  Serious: Yes (Disabling)
  Sender: FDA-Public Use
  Company Number: None

PATIENT
  Sex: Male
  Weight: 14 kg

DRUGS (1)
  1. LEXAPRO [Suspect]
     Indication: TRANSPOSITION OF THE GREAT VESSELS
     Dosage: 10 MG 1X DAY ORAL
     Route: 048
     Dates: start: 20120512, end: 20120603

REACTIONS (2)
  - EXPOSURE VIA FATHER [None]
  - HEART DISEASE CONGENITAL [None]
